FAERS Safety Report 13199746 (Version 1)
Quarter: 2017Q1

REPORT INFORMATION
  Report Type: Spontaneous
  Country: GB (occurrence: GB)
  Receive Date: 20170208
  Receipt Date: 20170208
  Transmission Date: 20170428
  Serious: Yes (Death, Other)
  Sender: FDA-Public Use
  Company Number: PHHY2017GB018369

PATIENT

DRUGS (4)
  1. AMIODARONE [Suspect]
     Active Substance: AMIODARONE
     Indication: TACHYCARDIA FOETAL
     Route: 065
  2. SOTALOL. [Suspect]
     Active Substance: SOTALOL
     Indication: HYDROPS FOETALIS
  3. AMIODARONE [Suspect]
     Active Substance: AMIODARONE
     Indication: HYDROPS FOETALIS
  4. SOTALOL. [Suspect]
     Active Substance: SOTALOL
     Indication: TACHYCARDIA FOETAL
     Route: 065

REACTIONS (4)
  - Supraventricular tachycardia [Unknown]
  - Foetal exposure during pregnancy [Unknown]
  - Hydrops foetalis [Unknown]
  - Bradycardia [Fatal]
